FAERS Safety Report 4616125-1 (Version None)
Quarter: 2005Q1

REPORT INFORMATION
  Report Type: 
  Country: None (occurrence: None)
  Receive Date: 20050323
  Receipt Date: 20050311
  Transmission Date: 20050727
  Serious: Yes (Death)
  Sender: FDA-Public Use
  Company Number: FR-JNJFOC-20050300079

PATIENT
  Age: 54 Year
  Sex: Female
  Weight: 91 kg

DRUGS (7)
  1. RISPERDAL [Suspect]
     Route: 049
  2. RISPERDAL [Suspect]
     Route: 049
  3. ABILIFY [Suspect]
     Route: 049
  4. RIVOTRIL [Suspect]
     Indication: DRUG USE FOR UNKNOWN INDICATION
     Route: 049
  5. LEPTICUR [Suspect]
     Indication: DRUG USE FOR UNKNOWN INDICATION
     Route: 049
  6. LIPANTHYL [Suspect]
     Indication: DRUG USE FOR UNKNOWN INDICATION
     Route: 049
  7. TERCIAN [Suspect]
     Indication: DRUG USE FOR UNKNOWN INDICATION
     Route: 049

REACTIONS (5)
  - CARDIAC ARREST [None]
  - DEATH [None]
  - PULMONARY EMBOLISM [None]
  - PYREXIA [None]
  - RESPIRATORY ARREST [None]
